FAERS Safety Report 19433560 (Version 1)
Quarter: 2021Q2

REPORT INFORMATION
  Report Type: Spontaneous
  Country: ID (occurrence: ID)
  Receive Date: 20210617
  Receipt Date: 20210617
  Transmission Date: 20210717
  Serious: Yes (Death, Other)
  Sender: FDA-Public Use
  Company Number: ID-SA-2021SA200708

PATIENT
  Age: 34 Year
  Sex: Female

DRUGS (16)
  1. APIDRA [Suspect]
     Active Substance: INSULIN GLULISINE
     Dosage: 5 IU, QH VIA SYRINGE PUMP
     Route: 042
     Dates: start: 20210603, end: 20210605
  2. LOVENOX [Concomitant]
     Active Substance: ENOXAPARIN SODIUM
     Dosage: 0.6 U, BID
     Route: 058
  3. COLCHICINE. [Concomitant]
     Active Substance: COLCHICINE
     Dosage: 2X1
     Route: 065
  4. VITAMIN D [COLECALCIFEROL] [Concomitant]
     Active Substance: CHOLECALCIFEROL
     Dosage: 1X5000
     Route: 065
  5. DEXAMETHASONE. [Concomitant]
     Active Substance: DEXAMETHASONE
     Dosage: 10 MG, QD
     Route: 065
  6. APIDRA [Suspect]
     Active Substance: INSULIN GLULISINE
     Dosage: 7 IU, TID
     Route: 058
     Dates: start: 20210602, end: 20210602
  7. REMDESIVIR. [Concomitant]
     Active Substance: REMDESIVIR
     Dosage: 200 MG, QD
     Route: 042
  8. OXYGEN. [Concomitant]
     Active Substance: OXYGEN
     Dosage: 15 L NRM
     Route: 065
  9. DEXAMETHASONE. [Concomitant]
     Active Substance: DEXAMETHASONE
     Dosage: 5 MG, QD
     Route: 065
  10. APIDRA [Suspect]
     Active Substance: INSULIN GLULISINE
     Indication: DIABETES MELLITUS INADEQUATE CONTROL
     Dosage: 6 IU
     Route: 042
     Dates: start: 20210530, end: 20210602
  11. REMDESIVIR. [Concomitant]
     Active Substance: REMDESIVIR
     Dosage: 100 UNK
     Route: 042
  12. KSR [Concomitant]
     Dosage: 2X1
     Route: 065
  13. OMEPRAZOLE. [Concomitant]
     Active Substance: OMEPRAZOLE
     Dosage: 40 MG, BID
     Route: 065
  14. INSULIN GLARGINE [Suspect]
     Active Substance: INSULIN GLARGINE
     Dosage: 21 IU, QD
     Route: 058
     Dates: start: 20210602
  15. LEVOFLOXACIN. [Concomitant]
     Active Substance: LEVOFLOXACIN
     Dosage: 0.6 U, BID
     Route: 058
  16. SOLVINEX [Concomitant]
     Dosage: 3X1 AMP,
     Route: 065

REACTIONS (3)
  - Blood glucose increased [Unknown]
  - Apnoea [Fatal]
  - Acute respiratory distress syndrome [Unknown]

NARRATIVE: CASE EVENT DATE: 20210603
